FAERS Safety Report 12333031 (Version 3)
Quarter: 2018Q2

REPORT INFORMATION
  Report Type: Spontaneous
  Country: US (occurrence: US)
  Receive Date: 20160504
  Receipt Date: 20180507
  Transmission Date: 20180711
  Serious: No
  Sender: FDA-Public Use
  Company Number: US-ROCHE-1699504

PATIENT
  Sex: Female

DRUGS (2)
  1. NABUMETONE. [Concomitant]
     Active Substance: NABUMETONE
  2. ESBRIET [Suspect]
     Active Substance: PIRFENIDONE
     Indication: IDIOPATHIC PULMONARY FIBROSIS
     Route: 048
     Dates: start: 20151210

REACTIONS (9)
  - Flatulence [Unknown]
  - Vomiting [Unknown]
  - Dizziness [Unknown]
  - Feeling abnormal [Unknown]
  - Abdominal distension [Unknown]
  - Dyspepsia [Unknown]
  - Malaise [Unknown]
  - Headache [Unknown]
  - Gastroenteritis viral [Unknown]
